FAERS Safety Report 24027256 (Version 1)
Quarter: 2024Q2

REPORT INFORMATION
  Report Type: Spontaneous
  Country: CZ (occurrence: CZ)
  Receive Date: 20240628
  Receipt Date: 20240628
  Transmission Date: 20240716
  Serious: Yes (Life-Threatening, Hospitalization, Other)
  Sender: FDA-Public Use
  Company Number: None

PATIENT
  Age: 64 Year
  Sex: Male
  Weight: 90 kg

DRUGS (6)
  1. OPDIVO [Suspect]
     Active Substance: NIVOLUMAB
     Indication: Malignant melanoma
     Dosage: IN TOTAL 14 DOSES AND 480MG
     Route: 042
     Dates: start: 20230504, end: 20240422
  2. ATORVASTATIN CALCIUM [Suspect]
     Active Substance: ATORVASTATIN CALCIUM
     Indication: Dyslipidaemia
     Route: 048
     Dates: start: 202401
  3. EUTHYROX [Concomitant]
     Active Substance: LEVOTHYROXINE SODIUM
     Indication: Hypothyroidism
     Route: 048
  4. ERDOSTEINE [Concomitant]
     Active Substance: ERDOSTEINE
     Indication: Product used for unknown indication
     Dosage: 2X1, FROM GENERAL PRACTITIONER
     Route: 048
  5. FENOFIX [Concomitant]
     Indication: Dyslipidaemia
     Dosage: 0-0-1
     Route: 048
  6. VIDONORM [Concomitant]
     Indication: Hypertension
     Route: 048

REACTIONS (2)
  - Hepatic enzyme increased [Recovering/Resolving]
  - Immune-mediated hepatitis [Recovering/Resolving]

NARRATIVE: CASE EVENT DATE: 20240516
